FAERS Safety Report 22860929 (Version 6)
Quarter: 2023Q4

REPORT INFORMATION
  Report Type: Spontaneous
  Country: US (occurrence: None)
  Receive Date: 20230824
  Receipt Date: 20231227
  Transmission Date: 20240110
  Serious: Yes (Other)
  Sender: FDA-Public Use
  Company Number: US-ROCHE-3410176

PATIENT
  Age: 81 Year
  Sex: Male
  Weight: 63.288 kg

DRUGS (9)
  1. ERIVEDGE [Suspect]
     Active Substance: VISMODEGIB
     Indication: Product used for unknown indication
     Route: 065
     Dates: start: 20230505, end: 20230627
  2. FEBUXOSTAT [Concomitant]
     Active Substance: FEBUXOSTAT
  3. METOPROLOL [Concomitant]
     Active Substance: METOPROLOL
     Dosage: 1/2 TABLET AT BEDTIME
  4. SERTRALINE [Concomitant]
     Active Substance: SERTRALINE HYDROCHLORIDE
  5. OZONE [Concomitant]
     Active Substance: OZONE
  6. NULYTELY [Concomitant]
     Active Substance: POLYETHYLENE GLYCOL 3350\POTASSIUM CHLORIDE\SODIUM BICARBONATE\SODIUM CHLORIDE
  7. MINERGIUM [Concomitant]
     Route: 048
  8. SALOFALK [Concomitant]
  9. RECOFOL [Concomitant]
     Dosage: RECOFOL 1% AMP 200 MG/20 ML 4050679

REACTIONS (18)
  - Arrhythmia [Unknown]
  - Depression [Unknown]
  - Muscle spasms [Unknown]
  - Ageusia [Unknown]
  - Weight decreased [Unknown]
  - Asthenia [Unknown]
  - Diarrhoea [Unknown]
  - Constipation [Unknown]
  - Decreased appetite [Unknown]
  - Abdominal pain upper [Unknown]
  - Dysuria [Unknown]
  - Diverticulitis [Unknown]
  - Illness [Unknown]
  - Pyrexia [Unknown]
  - Insomnia [Unknown]
  - Fatigue [Unknown]
  - Mental disorder [Unknown]
  - Ligament rupture [Unknown]

NARRATIVE: CASE EVENT DATE: 20230615
